FAERS Safety Report 14198110 (Version 1)
Quarter: 2017Q4

REPORT INFORMATION
  Report Type: Spontaneous
  Country: US (occurrence: US)
  Receive Date: 20171117
  Receipt Date: 20171117
  Transmission Date: 20180321
  Serious: Yes (Other)
  Sender: FDA-Public Use
  Company Number: US-DRREDDYS-USA/USA/17/0094645

PATIENT
  Sex: Male

DRUGS (3)
  1. AUGMENTIN [Suspect]
     Active Substance: AMOXICILLIN\CLAVULANATE POTASSIUM
     Indication: PRODUCT USED FOR UNKNOWN INDICATION
     Route: 058
  2. HUMIRA [Suspect]
     Active Substance: ADALIMUMAB
     Indication: RHEUMATOID ARTHRITIS
     Route: 065
  3. PREDNISONE. [Suspect]
     Active Substance: PREDNISONE
     Indication: PRODUCT USED FOR UNKNOWN INDICATION
     Route: 065

REACTIONS (12)
  - Ligament rupture [Unknown]
  - Bronchitis [Unknown]
  - Narcolepsy [Unknown]
  - Spinal osteoarthritis [Unknown]
  - Skin exfoliation [Unknown]
  - Pneumonia [Unknown]
  - Sinusitis [Unknown]
  - Rotator cuff syndrome [Unknown]
  - Diabetic neuropathy [Unknown]
  - Asthenia [Unknown]
  - Pertussis [Unknown]
  - Complex regional pain syndrome [Unknown]
